FAERS Safety Report 14190057 (Version 1)
Quarter: 2017Q4

REPORT INFORMATION
  Report Type: Spontaneous
  Country: US (occurrence: US)
  Receive Date: 20171114
  Receipt Date: 20171114
  Transmission Date: 20180321
  Serious: No
  Sender: FDA-Public Use
  Company Number: None

PATIENT
  Age: 34 Year
  Sex: Female
  Weight: 110.7 kg

DRUGS (1)
  1. AMMONIUM LACTATE 12% CREAM [Suspect]
     Active Substance: AMMONIUM LACTATE
     Indication: DRY SKIN
     Route: 061
     Dates: start: 20171114

REACTIONS (2)
  - Pain in extremity [None]
  - Pain [None]

NARRATIVE: CASE EVENT DATE: 20171114
